FAERS Safety Report 24146161 (Version 1)
Quarter: 2024Q3

REPORT INFORMATION
  Report Type: Report from Study
  Country: BR (occurrence: BR)
  Receive Date: 20240729
  Receipt Date: 20240729
  Transmission Date: 20241017
  Serious: Yes (Other)
  Sender: EMD SERONO INC
  Company Number: BR-Merck Healthcare KGaA-2023469640

PATIENT
  Age: 52 Year
  Sex: Female

DRUGS (6)
  1. REBIF [Suspect]
     Active Substance: INTERFERON BETA-1A
     Indication: Multiple sclerosis
     Dates: start: 20140908, end: 20191230
  2. REBIF [Suspect]
     Active Substance: INTERFERON BETA-1A
  3. INTERFERON BETA-1A [Suspect]
     Active Substance: INTERFERON BETA-1A
     Indication: Multiple sclerosis
     Dosage: REBIJECT II
     Route: 058
     Dates: start: 20200101
  4. RIVOTRIL [Concomitant]
     Active Substance: CLONAZEPAM
     Indication: Depression
  5. TRILEPTAL [Concomitant]
     Active Substance: OXCARBAZEPINE
     Indication: Depression
  6. CYMBI [ANETHUM GRAVEOLENS OIL;FOENICULUM VULGARE OIL;SIMETICONE] [Concomitant]
     Indication: Pain

REACTIONS (3)
  - Loss of consciousness [Unknown]
  - Multiple sclerosis relapse [Not Recovered/Not Resolved]
  - Daydreaming [Not Recovered/Not Resolved]

NARRATIVE: CASE EVENT DATE: 20230101
